FAERS Safety Report 9578059 (Version 1)
Quarter: 2013Q4

REPORT INFORMATION
  Report Type: Spontaneous
  Country: US (occurrence: US)
  Receive Date: 20131001
  Receipt Date: 20131001
  Transmission Date: 20140711
  Serious: No
  Sender: FDA-Public Use
  Company Number: US-AMGEN-USASP2013011091

PATIENT
  Sex: Male
  Weight: 136.5 kg

DRUGS (7)
  1. ENBREL [Suspect]
     Indication: PSORIASIS
     Dosage: 50 MG, QWK
     Route: 058
  2. ENBREL [Suspect]
     Indication: PSORIATIC ARTHROPATHY
  3. CARDIO [Concomitant]
     Dosage: UNK
  4. VITAMIN D                          /00107901/ [Concomitant]
     Dosage: 1000 UNIT, UNK
  5. IBUPROFEN [Concomitant]
     Dosage: 200 MG, UNK
  6. METHOTREXATE [Concomitant]
     Dosage: 50 MG/2 ML
  7. FOLIC ACID [Concomitant]
     Dosage: UNK

REACTIONS (3)
  - Localised infection [Unknown]
  - Psoriasis [Unknown]
  - Extra dose administered [Unknown]
